FAERS Safety Report 15469649 (Version 6)
Quarter: 2019Q1

REPORT INFORMATION
  Report Type: Spontaneous
  Country: US (occurrence: US)
  Receive Date: 20181005
  Receipt Date: 20190305
  Transmission Date: 20190417
  Serious: Yes (Hospitalization, Other)
  Sender: FDA-Public Use
  Company Number: US-SAKK-2018SA272805AA

PATIENT
  Age: 75 Year
  Sex: Female

DRUGS (3)
  1. PRALUENT [Suspect]
     Active Substance: ALIROCUMAB
     Indication: BLOOD CHOLESTEROL INCREASED
     Dosage: 75 MG, QOW
     Route: 058
     Dates: start: 20180906
  2. PRALUENT [Suspect]
     Active Substance: ALIROCUMAB
     Dosage: 75 MG, QOW
     Route: 058
  3. QUIRALAM [Concomitant]

REACTIONS (12)
  - Cardiac disorder [Unknown]
  - Rotator cuff repair [Unknown]
  - Hypersomnia [Unknown]
  - Atrial fibrillation [Unknown]
  - Angiopathy [Unknown]
  - Stress [Unknown]
  - Palpitations [Unknown]
  - Tremor [Unknown]
  - Memory impairment [Unknown]
  - Device issue [Unknown]
  - Anxiety [Unknown]
  - Product dose omission [Unknown]

NARRATIVE: CASE EVENT DATE: 201809
